FAERS Safety Report 4567151-2 (Version None)
Quarter: 2005Q1

REPORT INFORMATION
  Report Type: 
  Country: None (occurrence: None)
  Receive Date: 20050201
  Receipt Date: 20050121
  Transmission Date: 20050727
  Serious: Yes (Hospitalization)
  Sender: FDA-Public Use
  Company Number: GB-BRISTOL-MYERS SQUIBB COMPANY-12832432

PATIENT
  Age: 69 Year
  Sex: Male

DRUGS (5)
  1. HYDROXYUREA [Suspect]
     Indication: LEUKOCYTOSIS
  2. MONTELUKAST [Suspect]
     Indication: CHRONIC OBSTRUCTIVE PULMONARY DISEASE
     Route: 048
     Dates: start: 20031001, end: 20040101
  3. ISOSORBIDE MONONITRATE [Concomitant]
  4. DITROPAN [Concomitant]
  5. RAMIPRIL [Concomitant]
     Indication: HYPERTENSION

REACTIONS (4)
  - BONE MARROW DISORDER [None]
  - LEUKOCYTOSIS [None]
  - MALAISE [None]
  - WHITE BLOOD CELL COUNT DECREASED [None]
